FAERS Safety Report 8070895-1 (Version None)
Quarter: 2011Q4

REPORT INFORMATION
  Report Type: 
  Country: None (occurrence: None)
  Receive Date: 20111221
  Receipt Date: 20101112
  Transmission Date: 20120403
  Serious: Yes (Other)
  Sender: FDA-Public Use
  Company Number: PHHY2010US70265

PATIENT
  Age: 46 Year
  Sex: Female
  Weight: 45.4 kg

DRUGS (1)
  1. EXJADE [Suspect]
     Indication: IRON METABOLISM DISORDER
     Dosage: 1250 MG, QD, ORAL
     Route: 048
     Dates: start: 20101013, end: 20101021

REACTIONS (5)
  - RASH [None]
  - HYPERSENSITIVITY [None]
  - URTICARIA [None]
  - NAUSEA [None]
  - GINGIVAL DISORDER [None]
